FAERS Safety Report 4566237-6 (Version None)
Quarter: 2005Q1

REPORT INFORMATION
  Report Type: 
  Country: None (occurrence: None)
  Receive Date: 20050201
  Receipt Date: 20050120
  Transmission Date: 20050727
  Serious: Yes (Other)
  Sender: FDA-Public Use
  Company Number: 200510493US

PATIENT
  Age: 34 Year
  Sex: Male

DRUGS (1)
  1. TAXOTERE [Suspect]
     Indication: PROSTATE CANCER
     Dosage: DOSE: NOT PROVIDED

REACTIONS (1)
  - RENAL TUBULAR ACIDOSIS [None]
